FAERS Safety Report 5472443-9 (Version None)
Quarter: 2007Q3

REPORT INFORMATION
  Report Type: 
  Country: None (occurrence: None)
  Receive Date: 20070926
  Receipt Date: 20070911
  Transmission Date: 20080115
  Serious: Yes (Other)
  Sender: FDA-Public Use
  Company Number: 2007RR-09938

PATIENT
  Sex: Male

DRUGS (7)
  1. LISINOPRIL [Suspect]
     Dosage: 2.5MG, ORAL
     Route: 048
     Dates: start: 20061027, end: 20070731
  2. DISPERSIBLE ASPIRIN BP (ASPIRIN) [Concomitant]
  3. BISOPROLOL FUMARATE [Concomitant]
  4. CIMETIDINE BP (CIMETIDINE) [Concomitant]
  5. CLOPIDOGREL [Concomitant]
  6. SIMVASTATIN [Concomitant]
  7. SPIRONOLACTONE [Concomitant]

REACTIONS (2)
  - PROCTALGIA [None]
  - PSORIASIS [None]
